FAERS Safety Report 24166720 (Version 1)
Quarter: 2024Q3

REPORT INFORMATION
  Report Type: Spontaneous
  Country: US (occurrence: US)
  Receive Date: 20240802
  Receipt Date: 20240802
  Transmission Date: 20241017
  Serious: Yes (Other)
  Sender: BRISTOL MYERS SQUIBB
  Company Number: US-BRISTOL-MYERS SQUIBB COMPANY-2024-120412

PATIENT
  Age: 66 Year
  Sex: Male
  Weight: 103.87 kg

DRUGS (2)
  1. ONUREG [Suspect]
     Active Substance: AZACITIDINE
     Indication: Acute monocytic leukaemia
     Dosage: 1 TABLET DAILY FOR 14 DAYS ON, 14 DAYS OFF
     Route: 048
  2. ONUREG [Suspect]
     Active Substance: AZACITIDINE
     Dosage: 1 TABLET DAILY FOR 14 DAYS ON, 14 DAYS OFF
     Route: 048

REACTIONS (1)
  - Neutropenia [Recovering/Resolving]
